FAERS Safety Report 16184324 (Version 1)
Quarter: 2019Q2

REPORT INFORMATION
  Report Type: Spontaneous
  Country: US (occurrence: US)
  Receive Date: 20190410
  Receipt Date: 20190410
  Transmission Date: 20190711
  Serious: Yes (Hospitalization)
  Sender: FDA-Public Use
  Company Number: None

PATIENT
  Age: 63 Year
  Sex: Female

DRUGS (3)
  1. ESOMEPRAZOLE 40MG [Concomitant]
     Active Substance: ESOMEPRAZOLE
     Dates: start: 20170718
  2. ATORVASTATIN 20MG [Concomitant]
     Active Substance: ATORVASTATIN
     Dates: start: 20170722
  3. LOSARTAN/HCT TAB 100-25 AUROBINDO PHARMA [Suspect]
     Active Substance: HYDROCHLOROTHIAZIDE\LOSARTAN POTASSIUM
     Indication: HYPERTENSION
     Route: 048
     Dates: start: 20170719, end: 20190406

REACTIONS (3)
  - Dizziness [None]
  - Tremor [None]
  - Nervousness [None]

NARRATIVE: CASE EVENT DATE: 20190406
